FAERS Safety Report 20269320 (Version 1)
Quarter: 2022Q1

REPORT INFORMATION
  Report Type: Spontaneous
  Country: US (occurrence: US)
  Receive Date: 20220101
  Receipt Date: 20220101
  Transmission Date: 20220424
  Serious: Yes (Other)
  Sender: FDA-Public Use
  Company Number: US-MLMSERVICE-20211022-3181659-1

PATIENT
  Age: 39 Year
  Sex: Male

DRUGS (5)
  1. RISPERIDONE [Suspect]
     Active Substance: RISPERIDONE
     Indication: Negative thoughts
     Dosage: 0.5 MILLIGRAM, TWO TIMES A DAY
     Route: 065
  2. RISPERIDONE [Suspect]
     Active Substance: RISPERIDONE
     Indication: Hallucination, tactile
     Dosage: 1 MILLIGRAM, ONCE A DAY (BEDTIME)
     Route: 065
  3. RISPERIDONE [Suspect]
     Active Substance: RISPERIDONE
     Indication: Hallucination, auditory
  4. RISPERIDONE [Suspect]
     Active Substance: RISPERIDONE
     Indication: Paranoia
  5. RISPERIDONE [Suspect]
     Active Substance: RISPERIDONE
     Indication: Perseveration

REACTIONS (5)
  - Hypoxia [Unknown]
  - Musculoskeletal stiffness [Recovered/Resolved]
  - Extrapyramidal disorder [Recovered/Resolved]
  - Insomnia [Unknown]
  - Hyperhidrosis [Unknown]
